FAERS Safety Report 7801429-1 (Version None)
Quarter: 2011Q4

REPORT INFORMATION
  Report Type: 
  Country: None (occurrence: None)
  Receive Date: 20111006
  Receipt Date: 20111006
  Transmission Date: 20120403
  Serious: Yes (Hospitalization)
  Sender: FDA-Public Use
  Company Number: None

PATIENT
  Age: 85 Year
  Sex: Female
  Weight: 61.8 kg

DRUGS (11)
  1. COREG [Concomitant]
  2. LOSARTAN POTASSIUM [Concomitant]
  3. VIT D [Concomitant]
  4. MIRALAX [Concomitant]
  5. CALCIUM CARBONATE [Concomitant]
  6. LOVAZA [Concomitant]
  7. RANITIDINE [Concomitant]
  8. SYNTHROID [Concomitant]
  9. LASIX [Concomitant]
  10. DIGOXIN [Suspect]
     Indication: CARDIAC FAILURE CONGESTIVE
     Dosage: 0.25MG DAILY PO CHRONIC
     Route: 048
  11. COUMADIN [Concomitant]

REACTIONS (5)
  - NAUSEA [None]
  - URINARY TRACT INFECTION [None]
  - VOMITING [None]
  - TOXICITY TO VARIOUS AGENTS [None]
  - FAILURE TO THRIVE [None]
